FAERS Safety Report 15957080 (Version 2)
Quarter: 2019Q1

REPORT INFORMATION
  Report Type: Report from Study
  Country: EG (occurrence: EG)
  Receive Date: 20190213
  Receipt Date: 20190301
  Transmission Date: 20190417
  Serious: Yes (Other)
  Sender: FDA-Public Use
  Company Number: EG-ELI_LILLY_AND_COMPANY-EG201902004033

PATIENT
  Age: 26 Year
  Sex: Female

DRUGS (5)
  1. HUMULIN N [Suspect]
     Active Substance: INSULIN HUMAN
     Dosage: 10 IU, DAILY, EACH NIGHT
     Route: 058
     Dates: start: 2016
  2. INSULIN, HUMAN [Suspect]
     Active Substance: INSULIN HUMAN
     Indication: DIABETES MELLITUS
     Dosage: 20 IU, EACH MORNING
     Route: 065
     Dates: start: 2016
  3. INSULIN, HUMAN [Suspect]
     Active Substance: INSULIN HUMAN
     Dosage: 10 IU, DAILY, BEFORE LUNCH
     Route: 065
     Dates: start: 2016
  4. INSULIN, HUMAN [Suspect]
     Active Substance: INSULIN HUMAN
     Dosage: 15 IU, DAILY, AT NIGHT
     Route: 065
     Dates: start: 2016
  5. HUMULIN N [Suspect]
     Active Substance: INSULIN HUMAN
     Indication: DIABETES MELLITUS
     Dosage: 10 IU, EACH MORNING
     Route: 058
     Dates: start: 2016

REACTIONS (4)
  - Product dose omission [Unknown]
  - Diabetic coma [Not Recovered/Not Resolved]
  - Product dose omission [Not Recovered/Not Resolved]
  - Diabetic coma [Recovered/Resolved]

NARRATIVE: CASE EVENT DATE: 20190128
